FAERS Safety Report 10786381 (Version 1)
Quarter: 2015Q1

REPORT INFORMATION
  Report Type: Spontaneous
  Country: US (occurrence: None)
  Receive Date: 20150210
  Receipt Date: 20150210
  Transmission Date: 20150721
  Serious: Yes (Other)
  Sender: FDA-Public Use
  Company Number: None

PATIENT
  Age: 70 Year
  Sex: Male
  Weight: 77.11 kg

DRUGS (1)
  1. BRINTELLIX [Suspect]
     Active Substance: VORTIOXETINE HYDROBROMIDE
     Indication: DEPRESSION
     Dosage: ABOUT 30-45 DAYS, 3 PILLS, ONCE DAILY, TAKEN BY MOUTH
     Route: 048

REACTIONS (1)
  - Tinnitus [None]

NARRATIVE: CASE EVENT DATE: 20141231
